FAERS Safety Report 11526391 (Version 3)
Quarter: 2017Q2

REPORT INFORMATION
  Report Type: Spontaneous
  Country: US (occurrence: US)
  Receive Date: 20150919
  Receipt Date: 20170606
  Transmission Date: 20170829
  Serious: No
  Sender: FDA-Public Use
  Company Number: PHEH2015US018164

PATIENT
  Sex: Female

DRUGS (1)
  1. GLEEVEC [Suspect]
     Active Substance: IMATINIB MESYLATE
     Indication: CHRONIC MYELOID LEUKAEMIA
     Dosage: 400 MG, QD
     Route: 048
     Dates: start: 20141002

REACTIONS (6)
  - Arthralgia [Not Recovered/Not Resolved]
  - Weight increased [Unknown]
  - Ear infection [Unknown]
  - Hypotension [Unknown]
  - Dizziness postural [Unknown]
  - Viral upper respiratory tract infection [Unknown]
